FAERS Safety Report 5897606-X (Version None)
Quarter: 2008Q3

REPORT INFORMATION
  Report Type: 
  Country: None (occurrence: None)
  Receive Date: 20080925
  Receipt Date: 20080924
  Transmission Date: 20090109
  Serious: Yes (Hospitalization)
  Sender: FDA-Public Use
  Company Number: US-SANOFI-SYNTHELABO-F01200801447

PATIENT

DRUGS (4)
  1. FLUOROURACIL [Suspect]
     Dosage: 400 MG/M2 BOLUS FOLLOWED BY 2.4 GM/M2 INFUSION
     Route: 041
  2. LEUCOVORIN CALCIUM [Suspect]
     Dosage: 400 MG/M2
     Route: 041
  3. AVASTIN [Suspect]
     Dosage: 5 MG/KG
     Route: 041
  4. ELOXATIN [Suspect]
     Indication: COLON CANCER STAGE II
     Dosage: 85 MG/M2
     Route: 041
     Dates: start: 20080625

REACTIONS (2)
  - PLEURITIC PAIN [None]
  - SEPSIS [None]
